FAERS Safety Report 5817802-7 (Version None)
Quarter: 2008Q3

REPORT INFORMATION
  Report Type: 
  Country: None (occurrence: None)
  Receive Date: 20080722
  Receipt Date: 20080715
  Transmission Date: 20090109
  Serious: Yes (Hospitalization)
  Sender: FDA-Public Use
  Company Number: KR-JNJFOC-20080504487

PATIENT
  Sex: Female
  Weight: 75 kg

DRUGS (6)
  1. RISPERDAL [Suspect]
     Route: 048
  2. RISPERDAL [Suspect]
     Route: 048
  3. RISPERDAL [Suspect]
     Indication: SCHIZOPHRENIA
     Route: 048
  4. BENZTROPINE MESYLATE [Concomitant]
  5. LORAZEPAM [Concomitant]
  6. PROPRANOLOL [Concomitant]

REACTIONS (14)
  - ABDOMINAL INJURY [None]
  - AGITATION [None]
  - AKATHISIA [None]
  - ANXIETY [None]
  - DELUSION [None]
  - FEELING ABNORMAL [None]
  - INTENTIONAL SELF-INJURY [None]
  - OPEN WOUND [None]
  - PERITONEAL HAEMORRHAGE [None]
  - RESTLESSNESS [None]
  - SENSORY DISTURBANCE [None]
  - SUICIDAL BEHAVIOUR [None]
  - SUICIDE ATTEMPT [None]
  - TREMOR [None]
